FAERS Safety Report 5982685-1 (Version None)
Quarter: 2008Q4

REPORT INFORMATION
  Report Type: 
  Country: None (occurrence: None)
  Receive Date: 20081208
  Receipt Date: 20081205
  Transmission Date: 20090506
  Serious: Yes (Death)
  Sender: FDA-Public Use
  Company Number: ZA-NOVOPROD-282037

PATIENT

DRUGS (1)
  1. NORDITROPIN NORDIFLEX [Suspect]
     Dosage: 20 UG/KG, QD

REACTIONS (2)
  - EMBOLISM [None]
  - HAEMOPTYSIS [None]
